FAERS Safety Report 5166973-7 (Version None)
Quarter: 2006Q4

REPORT INFORMATION
  Report Type: 
  Country: None (occurrence: None)
  Receive Date: 20061207
  Receipt Date: 20061005
  Transmission Date: 20070319
  Serious: Yes (Other)
  Sender: FDA-Public Use
  Company Number: 2006CG01724

PATIENT
  Age: 26176 Day
  Sex: Male
  Weight: 71 kg

DRUGS (3)
  1. CRESTOR [Suspect]
     Route: 048
     Dates: start: 20050922
  2. AMLOR [Concomitant]
     Indication: HYPERTENSION
     Route: 048
     Dates: start: 20030411
  3. PLAVIX [Concomitant]
     Route: 048
     Dates: start: 20030411

REACTIONS (9)
  - ANAEMIA HAEMOLYTIC AUTOIMMUNE [None]
  - GASTRITIS [None]
  - GASTRITIS ATROPHIC [None]
  - GASTRITIS HAEMORRHAGIC [None]
  - HAEMOLYSIS [None]
  - INSOMNIA [None]
  - PLATELET COUNT INCREASED [None]
  - PSEUDOPOLYP [None]
  - RETICULOCYTOSIS [None]
